FAERS Safety Report 22961404 (Version 2)
Quarter: 2023Q4

REPORT INFORMATION
  Report Type: Spontaneous
  Country: JP (occurrence: JP)
  Receive Date: 20230920
  Receipt Date: 20231017
  Transmission Date: 20240110
  Serious: Yes (Hospitalization)
  Sender: FDA-Public Use
  Company Number: JP-CHUGAI-2023033504AA

PATIENT
  Age: 6 Decade
  Sex: Female

DRUGS (5)
  1. TECENTRIQ [Suspect]
     Active Substance: ATEZOLIZUMAB
     Indication: Non-small cell lung cancer
     Dosage: INJECTION, 1200 MILLIGRAM, ONCE/3WEEKS
     Route: 065
     Dates: start: 20230707, end: 20230818
  2. TECENTRIQ [Suspect]
     Active Substance: ATEZOLIZUMAB
     Dosage: 1200 MILLIGRAM, ONCE/3WEEKS
     Route: 065
     Dates: start: 20230929
  3. AVASTIN [Suspect]
     Active Substance: BEVACIZUMAB
     Indication: Non-small cell lung cancer
     Dosage: 15 MILLIGRAM/KILOGRAM, ONCE/3WEEKS
     Route: 065
     Dates: start: 20230707, end: 20230818
  4. CARBOPLATIN [Suspect]
     Active Substance: CARBOPLATIN
     Indication: Non-small cell lung cancer
     Route: 065
  5. PACLITAXEL [Suspect]
     Active Substance: PACLITAXEL
     Indication: Non-small cell lung cancer
     Route: 065

REACTIONS (1)
  - Enterocolitis [Recovering/Resolving]

NARRATIVE: CASE EVENT DATE: 20230908
